FAERS Safety Report 8485442-X (Version None)
Quarter: 2012Q3

REPORT INFORMATION
  Report Type: 
  Country: None (occurrence: None)
  Receive Date: 20120703
  Receipt Date: 20120629
  Transmission Date: 20120928
  Serious: Yes (Hospitalization)
  Sender: FDA-Public Use
  Company Number: DE-ROCHE-1082890

PATIENT
  Sex: Female
  Weight: 80 kg

DRUGS (4)
  1. BISOPROLOL PLUS [Concomitant]
     Dosage: 5 MG/12.5
  2. XELODA [Suspect]
     Indication: BREAST CANCER
     Dosage: DATE OF LAST DOSE PRIOR TO SAE: 26/JUN/2012
     Route: 048
     Dates: start: 20120516
  3. PACLITAXEL [Suspect]
     Indication: BREAST CANCER
     Dosage: DATE OF LAST DOSE PRIOR TO SAE: 20/JUN/2012
     Route: 042
     Dates: start: 20120516
  4. LEVOTHYROXINE SODIUM [Concomitant]
     Dosage: 125 (UNITS NOT PROVIDED)

REACTIONS (1)
  - MUCOSAL INFLAMMATION [None]
